FAERS Safety Report 8438115-3 (Version None)
Quarter: 2012Q2

REPORT INFORMATION
  Report Type: 
  Country: None (occurrence: None)
  Receive Date: 20120614
  Receipt Date: 20120601
  Transmission Date: 20120825
  Serious: Yes (Other)
  Sender: FDA-Public Use
  Company Number: IT-MYLANLABS-2012S1011572

PATIENT
  Age: 61 Year
  Sex: Female

DRUGS (1)
  1. CLOPIDOGREL [Suspect]
     Indication: MYOCARDIAL INFARCTION
     Route: 048
     Dates: start: 20120326, end: 20120428

REACTIONS (9)
  - STOMATITIS [None]
  - LYMPH NODE PALPABLE [None]
  - HEADACHE [None]
  - VERTIGO [None]
  - SPINAL PAIN [None]
  - MYALGIA [None]
  - ABDOMINAL PAIN [None]
  - OEDEMA [None]
  - ONYCHOMADESIS [None]
